FAERS Safety Report 9048998 (Version 2)
Quarter: 2014Q4

REPORT INFORMATION
  Report Type: Spontaneous
  Country: US (occurrence: US)
  Receive Date: 20130204
  Receipt Date: 20141217
  Transmission Date: 20150529
  Serious: No
  Sender: FDA-Public Use
  Company Number: US-ASTRAZENECA-2013SE06722

PATIENT
  Age: 31 Year
  Sex: Female
  Weight: 83.9 kg

DRUGS (6)
  1. TOPAMAX [Concomitant]
     Active Substance: TOPIRAMATE
  2. SEROQUEL [Suspect]
     Active Substance: QUETIAPINE FUMARATE
     Indication: BIPOLAR II DISORDER
     Route: 048
     Dates: start: 201212, end: 20130122
  3. ANTIBIOTICS [Suspect]
     Active Substance: UNSPECIFIED INGREDIENT
     Indication: FUNGAL INFECTION
     Route: 065
  4. NEXIUM [Suspect]
     Active Substance: ESOMEPRAZOLE MAGNESIUM
     Route: 048
  5. TRANXENE T-TAB [Concomitant]
     Active Substance: CLORAZEPATE DIPOTASSIUM
  6. SEROQUEL [Suspect]
     Active Substance: QUETIAPINE FUMARATE
     Indication: BIPOLAR II DISORDER
     Route: 048
     Dates: start: 201208, end: 201212

REACTIONS (15)
  - Memory impairment [Not Recovered/Not Resolved]
  - Off label use [Unknown]
  - Adverse event [Not Recovered/Not Resolved]
  - Bacterial infection [Not Recovered/Not Resolved]
  - Bipolar disorder [Unknown]
  - Vulvovaginitis [Not Recovered/Not Resolved]
  - Mania [Unknown]
  - Malaise [Not Recovered/Not Resolved]
  - Nervous system disorder [Not Recovered/Not Resolved]
  - Abdominal pain upper [Not Recovered/Not Resolved]
  - Fungal infection [Not Recovered/Not Resolved]
  - Withdrawal syndrome [Not Recovered/Not Resolved]
  - Somnolence [Not Recovered/Not Resolved]
  - Feeding disorder [Not Recovered/Not Resolved]
  - Gastric disorder [Not Recovered/Not Resolved]
